FAERS Safety Report 5424501-2 (Version None)
Quarter: 2007Q3

REPORT INFORMATION
  Report Type: 
  Country: None (occurrence: None)
  Receive Date: 20070727
  Receipt Date: 20070402
  Transmission Date: 20080115
  Serious: No
  Sender: FDA-Public Use
  Company Number: 262429

PATIENT
  Sex: Female

DRUGS (5)
  1. LEVEMIR [Suspect]
     Indication: INSULIN-REQUIRING TYPE II DIABETES MELLITUS
     Dosage: 10 IU, QD, SUBCUTANEOUS
     Route: 058
     Dates: start: 20070301
  2. LISINOPRIL [Concomitant]
  3. VYTORIN [Concomitant]
  4. LYRICA [Concomitant]
  5. PLAVIX [Concomitant]

REACTIONS (1)
  - INJECTION SITE BRUISING [None]
